FAERS Safety Report 4262912-1 (Version None)
Quarter: 2004Q1

REPORT INFORMATION
  Report Type: 
  Country: None (occurrence: None)
  Receive Date: 20040102
  Receipt Date: 20040102
  Transmission Date: 20041129
  Serious: Yes (Other)
  Sender: FDA-Public Use
  Company Number: None

PATIENT
  Age: 24 Year
  Sex: Female
  Weight: 61.2356 kg

DRUGS (1)
  1. PARADIGM LINK BLOOD GLUCOSE [Suspect]
     Dosage: 7-8 DAY
     Dates: start: 20031209, end: 20031218

REACTIONS (2)
  - BLOOD GLUCOSE DECREASED [None]
  - DEVICE FAILURE [None]
